FAERS Safety Report 4705283-6 (Version None)
Quarter: 2005Q3

REPORT INFORMATION
  Report Type: 
  Country: None (occurrence: None)
  Receive Date: 20050701
  Receipt Date: 20050526
  Transmission Date: 20060218
  Serious: Yes (Other)
  Sender: FDA-Public Use
  Company Number: JP-ROCHE-406259

PATIENT
  Age: 73 Year
  Sex: Female

DRUGS (3)
  1. PEG-INTERFERON A-2A (RO 25-8310) [Suspect]
     Route: 058
     Dates: start: 20040525, end: 20040713
  2. PEG-INTERFERON A-2A (RO 25-8310) [Suspect]
     Route: 058
     Dates: start: 20040720, end: 20040803
  3. AMLODIN [Concomitant]
     Route: 048

REACTIONS (2)
  - ERYTHEMA MULTIFORME [None]
  - PYREXIA [None]
